FAERS Safety Report 7577224-8 (Version None)
Quarter: 2011Q2

REPORT INFORMATION
  Report Type: 
  Country: None (occurrence: None)
  Receive Date: 20110628
  Receipt Date: 20110117
  Transmission Date: 20111010
  Serious: Yes (Hospitalization, Other)
  Sender: FDA-Public Use
  Company Number: US-BAYER-201032422NA

PATIENT
  Age: 20 Year
  Sex: Female
  Weight: 54.422 kg

DRUGS (9)
  1. YAZ [Suspect]
     Indication: CONTRACEPTION
     Dosage: UNK UNK, UNK
     Route: 065
     Dates: start: 20070801, end: 20081201
  2. YASMIN [Suspect]
     Indication: PRODUCT USED FOR UNKNOWN INDICATION
     Route: 065
  3. YASMIN [Suspect]
  4. ACETAMINOPHEN [Concomitant]
  5. VICODIN [Concomitant]
  6. LEXAPRO [Concomitant]
  7. IBUPROFEN [Concomitant]
  8. YAZ [Suspect]
     Indication: PRODUCT USED FOR UNKNOWN INDICATION
  9. METHERGINE [Concomitant]

REACTIONS (7)
  - DEPRESSION [None]
  - GALLBLADDER INJURY [None]
  - ANXIETY [None]
  - ABDOMINAL PAIN UPPER [None]
  - CHOLECYSTITIS CHRONIC [None]
  - CHOLELITHIASIS [None]
  - MENTAL DISORDER [None]
